FAERS Safety Report 8263908-5 (Version None)
Quarter: 2012Q2

REPORT INFORMATION
  Report Type: 
  Country: None (occurrence: None)
  Receive Date: 20120406
  Receipt Date: 20120402
  Transmission Date: 20120825
  Serious: Yes (Other)
  Sender: FDA-Public Use
  Company Number: US-AMGEN-USASP2012020829

PATIENT
  Age: 82 Year
  Sex: Female

DRUGS (6)
  1. PROLIA [Suspect]
     Indication: OSTEOPOROSIS POSTMENOPAUSAL
     Dates: start: 20120202
  2. ETODOLAC [Concomitant]
  3. FLUDROCORTISON [Concomitant]
  4. GABAPENTIN [Concomitant]
  5. OMEPRAZOLE [Concomitant]
  6. CORTISONE [Concomitant]

REACTIONS (1)
  - THYROID OPERATION [None]
